FAERS Safety Report 8800920 (Version 1)
Quarter: 2012Q4

REPORT INFORMATION
  Report Type: 
  Country: US (occurrence: US)
  Receive Date: 20120921
  Receipt Date: 20120921
  Transmission Date: 20130627
  Serious: Yes (Other)
  Sender: FDA-Public Use
  Company Number: US-SPECTRUM PHARMACEUTICALS, INC.-12-F-US-00133

PATIENT

DRUGS (2)
  1. FLUOROURACIL [Suspect]
     Indication: COLON CANCER
     Dosage: 9.7 to 15.7 g, UNK
     Route: 065
  2. LEVAMISOLE [Suspect]
     Indication: COLON CANCER
     Dosage: 2.7 to 3.75 g, UNK
     Route: 065

REACTIONS (4)
  - Mental status changes [Recovering/Resolving]
  - Ataxia [Recovering/Resolving]
  - Loss of consciousness [Recovering/Resolving]
  - Leukoencephalopathy [Recovering/Resolving]
